FAERS Safety Report 8115446-8 (Version None)
Quarter: 2012Q1

REPORT INFORMATION
  Report Type: 
  Country: None (occurrence: None)
  Receive Date: 20120206
  Receipt Date: 20120130
  Transmission Date: 20120608
  Serious: Yes (Hospitalization, Other)
  Sender: FDA-Public Use
  Company Number: CH-PFIZER INC-2011297415

PATIENT
  Age: 55 Year
  Sex: Female

DRUGS (1)
  1. CELECOXIB [Suspect]
     Indication: PERIARTHRITIS
     Dosage: 200 MG A DAY FOR 1 WEEK

REACTIONS (1)
  - ACUTE GENERALISED EXANTHEMATOUS PUSTULOSIS [None]
